FAERS Safety Report 8737927 (Version 3)
Quarter: 2012Q4

REPORT INFORMATION
  Report Type: 
  Country: ES (occurrence: ES)
  Receive Date: 20120823
  Receipt Date: 20121005
  Transmission Date: 20130627
  Serious: Yes (Other)
  Sender: FDA-Public Use
  Company Number: ES-AMGEN-ESPSP2012052676

PATIENT
  Age: 38 Year
  Sex: Female

DRUGS (1)
  1. ENBREL [Suspect]
     Indication: RHEUMATOID ARTHRITIS
     Dosage: 50 mg, 2x/week
     Route: 065
     Dates: start: 20100407, end: 20120223

REACTIONS (2)
  - Corneal perforation [Recovered/Resolved]
  - Uveitis [Recovered/Resolved]
